FAERS Safety Report 8341609-2 (Version None)
Quarter: 2012Q2

REPORT INFORMATION
  Report Type: 
  Country: None (occurrence: None)
  Receive Date: 20120507
  Receipt Date: 20120430
  Transmission Date: 20120825
  Serious: No
  Sender: FDA-Public Use
  Company Number: US-B.I. PHARMACEUTICALS,INC./RIDGEFIELD-2012-BP-09798BP

PATIENT
  Age: 87 Year
  Sex: Female

DRUGS (12)
  1. VITAMIN D [Concomitant]
     Indication: SUPPLEMENTATION THERAPY
  2. EVISTA [Concomitant]
     Indication: PROPHYLAXIS
  3. CENTRUM [Concomitant]
     Indication: SUPPLEMENTATION THERAPY
  4. CARVEDILOL [Concomitant]
     Indication: HYPERTENSION
  5. METFORMIN HCL [Concomitant]
     Indication: DIABETES MELLITUS
  6. PRADAXA [Suspect]
     Indication: ATRIAL FIBRILLATION
     Dosage: 300 MG
     Route: 048
     Dates: start: 20111101
  7. CALCIUM CARBONATE [Concomitant]
     Indication: SUPPLEMENTATION THERAPY
  8. VITAMIN B-12 [Concomitant]
     Indication: SUPPLEMENTATION THERAPY
  9. DIGOXIN [Concomitant]
     Indication: ATRIAL FIBRILLATION
  10. HYDROCHLOROTHIAZIDE [Concomitant]
     Indication: HYPERTENSION
  11. METHIMAZOLE [Concomitant]
     Indication: HYPERTHYROIDISM
  12. SIMVASTATIN [Concomitant]
     Indication: BLOOD CHOLESTEROL INCREASED

REACTIONS (1)
  - MUSCLE SPASMS [None]
